FAERS Safety Report 7477063-2 (Version None)
Quarter: 2011Q2

REPORT INFORMATION
  Report Type: 
  Country: None (occurrence: None)
  Receive Date: 20110512
  Receipt Date: 20110504
  Transmission Date: 20111010
  Serious: Yes (Other)
  Sender: FDA-Public Use
  Company Number: US-MERCK-1012USA01888

PATIENT
  Age: 63 Year
  Sex: Female
  Weight: 77 kg

DRUGS (20)
  1. FOSAMAX [Suspect]
     Indication: OSTEOPOROSIS
     Route: 048
     Dates: start: 20020101, end: 20080101
  2. ESTROPIPATE [Concomitant]
     Route: 065
  3. CHLORAZEPATE [Concomitant]
     Route: 065
  4. FOSAMAX [Suspect]
     Route: 048
     Dates: start: 19990622, end: 20001001
  5. CALCIUM (UNSPECIFIED) [Concomitant]
     Indication: OSTEOPOROSIS
     Route: 065
  6. SINGULAIR [Concomitant]
     Indication: RHINITIS
     Route: 048
  7. PEPCID [Concomitant]
     Indication: GASTROOESOPHAGEAL REFLUX DISEASE
     Route: 048
  8. FOSAMAX [Suspect]
     Route: 048
     Dates: start: 19990622, end: 20001001
  9. FOSAMAX [Suspect]
     Route: 048
     Dates: start: 20001001, end: 20020101
  10. ALENDRONATE SODIUM [Suspect]
     Indication: OSTEOARTHRITIS
     Route: 048
     Dates: start: 20080301, end: 20080901
  11. ALENDRONATE SODIUM [Suspect]
     Indication: OSTEOPOROSIS
     Route: 048
     Dates: start: 20080301, end: 20080901
  12. LEVOTHROID [Concomitant]
     Indication: HYPOTHYROIDISM
     Route: 048
  13. CLARITIN [Concomitant]
     Route: 065
  14. FLEXTRA DS [Concomitant]
     Route: 065
  15. CALCIUM (UNSPECIFIED) [Concomitant]
     Indication: OSTEOARTHRITIS
     Route: 065
  16. FOSAMAX [Suspect]
     Route: 048
     Dates: start: 20001001, end: 20020101
  17. LOTREL [Concomitant]
     Indication: HYPERTENSION
     Route: 065
  18. ZOCOR [Concomitant]
     Indication: HYPERLIPIDAEMIA
     Route: 048
  19. CELEBREX [Concomitant]
     Route: 048
  20. FOSAMAX [Suspect]
     Indication: OSTEOARTHRITIS
     Route: 048
     Dates: start: 20020101, end: 20080101

REACTIONS (43)
  - OSTEONECROSIS OF JAW [None]
  - STOMATITIS [None]
  - MUSCULAR WEAKNESS [None]
  - PNEUMONIA [None]
  - NEUROPATHY PERIPHERAL [None]
  - DENTAL CARIES [None]
  - OSTEOMYELITIS [None]
  - ACTINOMYCOSIS [None]
  - ULNAR NERVE PALSY [None]
  - TREMOR [None]
  - TOOTH FRACTURE [None]
  - DEPRESSION [None]
  - COMPLEX REGIONAL PAIN SYNDROME [None]
  - UPPER LIMB FRACTURE [None]
  - PALATAL DISORDER [None]
  - GASTRITIS [None]
  - HYPERGLYCAEMIA [None]
  - RADICULOPATHY [None]
  - POST LAMINECTOMY SYNDROME [None]
  - ASTHMA [None]
  - SPINAL COMPRESSION FRACTURE [None]
  - MACULAR DEGENERATION [None]
  - OSTEOARTHRITIS [None]
  - CATARACT [None]
  - ANKLE FRACTURE [None]
  - MEMORY IMPAIRMENT [None]
  - TOOTH ABSCESS [None]
  - SPINAL COLUMN STENOSIS [None]
  - SPINAL DISORDER [None]
  - FALL [None]
  - SPINAL OSTEOARTHRITIS [None]
  - WEIGHT INCREASED [None]
  - TRAUMATIC ARTHRITIS [None]
  - ACUTE SINUSITIS [None]
  - MUSCLE INJURY [None]
  - DRY SKIN [None]
  - METABOLIC DISORDER [None]
  - JAW DISORDER [None]
  - INCONTINENCE [None]
  - SIALOMETAPLASIA [None]
  - PATELLA FRACTURE [None]
  - HAIR TEXTURE ABNORMAL [None]
  - CARPAL TUNNEL SYNDROME [None]
